FAERS Safety Report 5850400-8 (Version None)
Quarter: 2008Q3

REPORT INFORMATION
  Report Type: 
  Country: None (occurrence: None)
  Receive Date: 20080818
  Receipt Date: 20080805
  Transmission Date: 20090109
  Serious: Yes (Other)
  Sender: FDA-Public Use
  Company Number: 237295J08USA

PATIENT
  Age: 30 Year
  Sex: Female
  Weight: 100.6985 kg

DRUGS (4)
  1. REBIF [Suspect]
     Indication: MULTIPLE SCLEROSIS
     Dosage: 44 MCG, 3 IN 1 WEEKS, SUBCUTANEOUS, SUBCUTANEOUS
     Route: 058
     Dates: start: 20080606
  2. REBIF [Suspect]
     Indication: MULTIPLE SCLEROSIS
     Dosage: 44 MCG, 3 IN 1 WEEKS, SUBCUTANEOUS, SUBCUTANEOUS
     Route: 058
     Dates: start: 20080704
  3. PRENATAL VITAMINS (PRENATAL VITAMINS) [Concomitant]
  4. FOLIC ACID [Concomitant]

REACTIONS (8)
  - ARTHROPOD BITE [None]
  - CHOLELITHIASIS [None]
  - CONDITION AGGRAVATED [None]
  - HYPERHIDROSIS [None]
  - HYPERSENSITIVITY [None]
  - MULTIPLE SCLEROSIS [None]
  - RASH PRURITIC [None]
  - URTICARIA [None]
